FAERS Safety Report 9683708 (Version 1)
Quarter: 2013Q4

REPORT INFORMATION
  Report Type: Spontaneous
  Country: US (occurrence: None)
  Receive Date: 20131111
  Receipt Date: 20131111
  Transmission Date: 20140711
  Serious: Yes (Death)
  Sender: FDA-Public Use
  Company Number: None

PATIENT
  Age: 65 Year
  Sex: Male
  Weight: 70.31 kg

DRUGS (1)
  1. ATORVASTATIN 10MG RANBAXY [Suspect]
     Indication: BLOOD CHOLESTEROL INCREASED
     Dosage: 30 ONCE DAILY TAKEN BY MOUTH
     Route: 048
     Dates: start: 20120920, end: 20121102

REACTIONS (1)
  - Poor quality drug administered [None]
